FAERS Safety Report 6260675-1 (Version None)
Quarter: 2009Q3

REPORT INFORMATION
  Report Type: 
  Country: None (occurrence: None)
  Receive Date: 20090706
  Receipt Date: 20090624
  Transmission Date: 20100115
  Serious: Yes (Hospitalization)
  Sender: FDA-Public Use
  Company Number: GXKR2009CA07288

PATIENT
  Age: 81 Year
  Sex: Male

DRUGS (9)
  1. CLARITHROMYCIN [Suspect]
     Indication: HELICOBACTER INFECTION
     Dosage: 500 MG, BID
  2. DURAGESIC-100 [Suspect]
     Indication: NECK PAIN
     Dosage: 200 UG/HR, TRANSDERMAL
     Route: 062
  3. SALBUTAMOL (SALBUTAMOL) [Concomitant]
  4. IPRATROPIUM BROMIDE [Concomitant]
  5. PREDNISONE TAB [Concomitant]
  6. LEVOFLOXACIN [Concomitant]
  7. VANCOMYCIN [Concomitant]
  8. RED BLOOD CELLS [Concomitant]
  9. METRONIDAZOLE (METRONIDAZOLE) [Concomitant]

REACTIONS (15)
  - AGITATION [None]
  - ANAEMIA [None]
  - CHRONIC OBSTRUCTIVE PULMONARY DISEASE [None]
  - CONDITION AGGRAVATED [None]
  - DRUG INTERACTION [None]
  - DRUG WITHDRAWAL SYNDROME [None]
  - GASTROINTESTINAL HAEMORRHAGE [None]
  - HELICOBACTER GASTRITIS [None]
  - HYPOVENTILATION [None]
  - IRON DEFICIENCY ANAEMIA [None]
  - MIOSIS [None]
  - PAROTITIS [None]
  - RESPIRATORY DISTRESS [None]
  - RESPIRATORY FAILURE [None]
  - UNRESPONSIVE TO STIMULI [None]
